FAERS Safety Report 7112337-6 (Version None)
Quarter: 2010Q4

REPORT INFORMATION
  Report Type: 
  Country: None (occurrence: None)
  Receive Date: 20101119
  Receipt Date: 20100805
  Transmission Date: 20110411
  Serious: No
  Sender: FDA-Public Use
  Company Number: A0874207A

PATIENT
  Age: 73 Year
  Sex: Male

DRUGS (2)
  1. AVODART [Suspect]
     Indication: MICTURITION DISORDER
     Dosage: .5MG PER DAY
     Route: 048
     Dates: start: 20100401, end: 20100401
  2. NO CONCURRENT MEDICATION [Concomitant]

REACTIONS (2)
  - CONSTIPATION [None]
  - THIRST [None]
